FAERS Safety Report 25614627 (Version 7)
Quarter: 2025Q4

REPORT INFORMATION
  Report Type: Spontaneous
  Country: EU (occurrence: EU)
  Receive Date: 20250729
  Receipt Date: 20251125
  Transmission Date: 20260117
  Serious: Yes (Hospitalization, Other)
  Sender: BRISTOL-MYERS SQUIBB COMPANY
  Company Number: EU-JNJFOC-20250715138

PATIENT
  Age: 73 Year
  Sex: Male
  Weight: 65 kg

DRUGS (5)
  1. LENALIDOMIDE [Suspect]
     Active Substance: LENALIDOMIDE
     Indication: Plasma cell myeloma
     Dosage: MOST RECENT DOSE WAS ON 17-JUL-2025
     Route: 048
     Dates: start: 20190823, end: 20250717
  2. DARATUMUMAB [Suspect]
     Active Substance: DARATUMUMAB
     Indication: Plasma cell myeloma
     Dosage: MOST RECENT DOSE WAS ON 17-JUL-2025
     Route: 058
     Dates: start: 20190823, end: 20250717
  3. DEXAMETHASONE [Suspect]
     Active Substance: DEXAMETHASONE
     Indication: Plasma cell myeloma
     Dosage: MOST RECENT DOSE WAS ON 17-JUL-2025
     Route: 048
     Dates: start: 20190423, end: 20250717
  4. BORTEZOMIB [Suspect]
     Active Substance: BORTEZOMIB
     Indication: Plasma cell myeloma
     Dosage: MOST RECENT DOSE WAS ON 19-JUL-2025
     Route: 058
     Dates: start: 20190823, end: 20250719
  5. ACETAMINOPHEN [Concomitant]
     Active Substance: ACETAMINOPHEN
     Indication: Pyrexia
     Dates: start: 20250707

REACTIONS (2)
  - Bile duct stone [Recovered/Resolved]
  - Biloma [Recovered/Resolved]

NARRATIVE: CASE EVENT DATE: 20250707
